FAERS Safety Report 9530296 (Version 1)
Quarter: 2013Q3

REPORT INFORMATION
  Report Type: Report from Study
  Country: BR (occurrence: BR)
  Receive Date: 20130917
  Receipt Date: 20130917
  Transmission Date: 20140515
  Serious: Yes (Other)
  Sender: FDA-Public Use
  Company Number: BR-US-EMD SERONO, INC.-7236602

PATIENT
  Age: 32 Year
  Sex: Female

DRUGS (3)
  1. REBIF [Suspect]
     Indication: MULTIPLE SCLEROSIS
     Dates: start: 20130503
  2. INSULINE NPH [Concomitant]
     Indication: DIABETES MELLITUS
  3. INSULIN, REGULAR [Concomitant]
     Indication: DIABETES MELLITUS

REACTIONS (2)
  - Blood pressure increased [Not Recovered/Not Resolved]
  - Convulsion [Recovered/Resolved]
